FAERS Safety Report 4423303-3 (Version None)
Quarter: 2004Q3

REPORT INFORMATION
  Report Type: 
  Country: None (occurrence: None)
  Receive Date: 20040811
  Receipt Date: 20040616
  Transmission Date: 20050211
  Serious: Yes (Other)
  Sender: FDA-Public Use
  Company Number: BE-GLAXOSMITHKLINE-B0336371A

PATIENT
  Age: 44 Year
  Sex: Female
  Weight: 70 kg

DRUGS (2)
  1. ZYBAN [Suspect]
     Dosage: 150MG SEE DOSAGE TEXT
     Dates: start: 20040302, end: 20040607
  2. NO CONCURRENT MEDICATION [Concomitant]

REACTIONS (8)
  - ACTIVITIES OF DAILY LIVING IMPAIRED [None]
  - AFFECT LABILITY [None]
  - ANXIETY [None]
  - CRYING [None]
  - DEPRESSED MOOD [None]
  - MENTAL DISORDER [None]
  - NICOTINE DEPENDENCE [None]
  - SLEEP DISORDER [None]
